FAERS Safety Report 12974161 (Version 1)
Quarter: 2016Q4

REPORT INFORMATION
  Report Type: Spontaneous
  Country: US (occurrence: US)
  Receive Date: 20161125
  Receipt Date: 20161125
  Transmission Date: 20170207
  Serious: Yes (Hospitalization, Other)
  Sender: FDA-Public Use
  Company Number: US-AMGEN-USASP2016163489

PATIENT
  Age: 60 Year
  Sex: Female

DRUGS (4)
  1. ALBUTEROL. [Concomitant]
     Active Substance: ALBUTEROL
  2. ZOLOFT [Concomitant]
     Active Substance: SERTRALINE HYDROCHLORIDE
  3. PROLIA [Suspect]
     Active Substance: DENOSUMAB
     Indication: OSTEOPOROSIS POSTMENOPAUSAL
     Dosage: UNK
     Route: 065
     Dates: start: 201609
  4. COMBIVENT [Concomitant]
     Active Substance: ALBUTEROL SULFATE\IPRATROPIUM BROMIDE

REACTIONS (11)
  - Abdominal pain upper [Unknown]
  - Pain in jaw [Unknown]
  - Pain in extremity [Unknown]
  - Respiratory tract infection [Unknown]
  - Jaw disorder [Unknown]
  - Flatulence [Unknown]
  - Sweating fever [Unknown]
  - Back pain [Unknown]
  - Ear pain [Unknown]
  - Musculoskeletal pain [Unknown]
  - Fatigue [Unknown]
